FAERS Safety Report 10487806 (Version 3)
Quarter: 2015Q1

REPORT INFORMATION
  Report Type: Spontaneous
  Country: US (occurrence: US)
  Receive Date: 20141001
  Receipt Date: 20150114
  Transmission Date: 20150720
  Serious: No
  Sender: FDA-Public Use
  Company Number: US-PFIZER INC-2014262800

PATIENT
  Age: 86 Year
  Sex: Female

DRUGS (1)
  1. FLECTOR [Suspect]
     Active Substance: DICLOFENAC EPOLAMINE
     Indication: BACK PAIN
     Dosage: UNK, ONCE DAY AT SAME TIME
     Dates: start: 201408

REACTIONS (5)
  - Nausea [Unknown]
  - Nervousness [Unknown]
  - Peripheral swelling [Unknown]
  - Joint swelling [Unknown]
  - Tremor [Unknown]
